FAERS Safety Report 20637767 (Version 1)
Quarter: 2022Q1

REPORT INFORMATION
  Report Type: Report from Study
  Country: IN (occurrence: IN)
  Receive Date: 20220325
  Receipt Date: 20220325
  Transmission Date: 20220424
  Serious: Yes (Hospitalization, Other)
  Sender: FDA-Public Use
  Company Number: IN-NOVARTISPH-NVSC2019IN004022

PATIENT
  Age: 31 Year
  Sex: Male

DRUGS (21)
  1. SIMULECT [Suspect]
     Active Substance: BASILIXIMAB
     Indication: Renal transplant
     Dosage: 20 MG (DAY 0) (20 MG IN 100 ML NORMAL SALINE EVERY 30 MINS)
     Route: 042
     Dates: start: 20190815
  2. SIMULECT [Suspect]
     Active Substance: BASILIXIMAB
     Dosage: 20 UNK (DAY 04) (20 MG IN 100 ML NORMAL SALINE EVERY 30 MINS)
     Route: 042
     Dates: end: 20190819
  3. TACROLIMUS [Concomitant]
     Active Substance: TACROLIMUS
     Indication: Product used for unknown indication
     Dosage: UNK
     Route: 065
  4. TACROLIMUS [Concomitant]
     Active Substance: TACROLIMUS
     Dosage: 4 MG, BID
     Route: 065
     Dates: start: 20190821
  5. KETOCONAZOLE [Concomitant]
     Active Substance: KETOCONAZOLE
     Indication: Product used for unknown indication
     Dosage: 100 MG
     Route: 065
     Dates: start: 20190821
  6. IMIPENEM [Concomitant]
     Active Substance: IMIPENEM
     Indication: Product used for unknown indication
     Dosage: UNK
     Route: 065
     Dates: start: 20190831
  7. FOSFOMYCIN [Concomitant]
     Active Substance: FOSFOMYCIN
     Indication: Product used for unknown indication
     Dosage: (STOPPED AFTER 5 DAYS)
     Route: 065
     Dates: start: 20190831
  8. VANCOMYCIN [Concomitant]
     Active Substance: VANCOMYCIN
     Indication: Product used for unknown indication
     Dosage: (STOPPED AFTER 5 DAYS)
     Route: 065
     Dates: start: 20190831
  9. MYFORTIC [Concomitant]
     Active Substance: MYCOPHENOLATE SODIUM
     Indication: Product used for unknown indication
     Dosage: UNK
     Route: 065
     Dates: end: 20190831
  10. MYFORTIC [Concomitant]
     Active Substance: MYCOPHENOLATE SODIUM
     Dosage: UNK (LOW DOSE OF MYFORTIC WAS REINTRODUCED)
     Route: 065
  11. MYFORTIC [Concomitant]
     Active Substance: MYCOPHENOLATE SODIUM
     Dosage: 180 MG, BID (ON EMPTY STOMACH, 1-0-1)
     Route: 065
  12. PREDNISOLONE [Concomitant]
     Active Substance: PREDNISOLONE
     Indication: Product used for unknown indication
     Dosage: UNK UNK, QD
     Route: 065
  13. PREDNISOLONE [Concomitant]
     Active Substance: PREDNISOLONE
     Dosage: 20 MG, QD
     Route: 065
  14. TACROGRAF [Concomitant]
     Indication: Product used for unknown indication
     Dosage: 4 MG, BID (ON EMPTY STOMACH, 1-0-1)
     Route: 065
  15. FEBUXOSTAT [Concomitant]
     Active Substance: FEBUXOSTAT
     Indication: Product used for unknown indication
     Dosage: 1 DOSAGE FORM, QD (1-0-0)
     Route: 065
  16. PREDNISOLONE [Concomitant]
     Active Substance: PREDNISOLONE
     Indication: Product used for unknown indication
     Dosage: 20 MG, QD (AFTER BREAKFAST (1-0-0))
     Route: 065
  17. ALEGRA [Concomitant]
     Indication: Product used for unknown indication
     Dosage: 120 MG (SOS)
     Route: 065
  18. VALGANCICLOVIR HYDROCHLORIDE [Concomitant]
     Active Substance: VALGANCICLOVIR HYDROCHLORIDE
     Indication: Product used for unknown indication
     Dosage: 1 DOSAGE FORM, QD (1-0-0 EVERY 6 MONTHS)
     Route: 065
  19. RANITIDINE HYDROCHLORIDE [Concomitant]
     Active Substance: RANITIDINE HYDROCHLORIDE
     Indication: Product used for unknown indication
     Dosage: 1 DOSAGE FORM, QD (1-0-1) (B/F)
     Route: 065
  20. CALCIUM CARBONATE\CHOLECALCIFEROL [Concomitant]
     Active Substance: CALCIUM CARBONATE\CHOLECALCIFEROL
     Indication: Product used for unknown indication
     Dosage: 1 DOSAGE FORM, QD (1-0-0)
     Route: 065
  21. BECOSULES [Concomitant]
     Indication: Product used for unknown indication
     Dosage: UNK, QD (0-1-0)
     Route: 065

REACTIONS (15)
  - Kidney transplant rejection [Unknown]
  - Suprapubic pain [Not Recovered/Not Resolved]
  - Graft complication [Unknown]
  - Anuria [Unknown]
  - Urine output decreased [Unknown]
  - Urine output increased [Unknown]
  - Renal tubular injury [Unknown]
  - Productive cough [Unknown]
  - Transplant dysfunction [Unknown]
  - Blood creatinine decreased [Unknown]
  - Gastroenteritis [Unknown]
  - White blood cell count decreased [Unknown]
  - Diarrhoea [Unknown]
  - Complications of transplanted kidney [Unknown]
  - Pneumonia [Recovered/Resolved]

NARRATIVE: CASE EVENT DATE: 20190819
